FAERS Safety Report 5326534-3 (Version None)
Quarter: 2007Q2

REPORT INFORMATION
  Report Type: 
  Country: None (occurrence: None)
  Receive Date: 20070510
  Receipt Date: 20070503
  Transmission Date: 20071010
  Serious: Yes (Other)
  Sender: FDA-Public Use
  Company Number: 2006SP008120

PATIENT
  Age: 56 Year
  Sex: Male
  Weight: 89.8122 kg

DRUGS (7)
  1. RIBAVIRIN [Suspect]
     Indication: HEPATITIS C
     Dosage: PO
     Route: 048
     Dates: start: 20060920
  2. PEG-INTRON [Suspect]
     Indication: HEPATITIS
     Dosage: SC
     Route: 058
     Dates: start: 20060920
  3. NEURONTIN [Concomitant]
  4. SEROQUEL [Concomitant]
  5. SINEQUAN [Concomitant]
  6. TRAZODONE HCI [Concomitant]
  7. ULTRAM [Concomitant]

REACTIONS (16)
  - ABDOMINAL DISCOMFORT [None]
  - ABDOMINAL PAIN UPPER [None]
  - ABNORMAL FAECES [None]
  - ARTHRALGIA [None]
  - BINGE EATING [None]
  - CONDITION AGGRAVATED [None]
  - DIARRHOEA [None]
  - EPISTAXIS [None]
  - INSOMNIA [None]
  - MOUTH HAEMORRHAGE [None]
  - MUSCLE SPASMS [None]
  - PYREXIA [None]
  - RASH [None]
  - RECTAL HAEMORRHAGE [None]
  - RESPIRATORY RATE INCREASED [None]
  - WEIGHT DECREASED [None]
